FAERS Safety Report 6296061-8 (Version None)
Quarter: 2009Q3

REPORT INFORMATION
  Report Type: 
  Country: None (occurrence: None)
  Receive Date: 20090731
  Receipt Date: 20090715
  Transmission Date: 20100115
  Serious: Yes (Hospitalization)
  Sender: FDA-Public Use
  Company Number: 20090306

PATIENT
  Age: 83 Year
  Sex: Female

DRUGS (1)
  1. METHYLENE BLUE INJECTION 1% [Suspect]
     Indication: LYMPHATIC DISORDER
     Dosage: 5 ML OTHER
     Route: 050

REACTIONS (2)
  - BREAST CELLULITIS [None]
  - RASH PRURITIC [None]
